FAERS Safety Report 19723912 (Version 1)
Quarter: 2021Q3

REPORT INFORMATION
  Report Type: Spontaneous
  Country: DE (occurrence: DE)
  Receive Date: 20210820
  Receipt Date: 20210820
  Transmission Date: 20211014
  Serious: Yes (Other)
  Sender: FDA-Public Use
  Company Number: DE-AUROBINDO-AUR-APL-2012-03939

PATIENT
  Sex: Female
  Weight: 52 kg

DRUGS (7)
  1. TREDAPTIVE [Suspect]
     Active Substance: LAROPIPRANT\NICOTINIC ACID HYDRAZIDE
     Indication: PRODUCT USED FOR UNKNOWN INDICATION
     Dosage: 1000 UNK,UNK,
     Route: 065
  2. PRAVASTATIN. [Suspect]
     Active Substance: PRAVASTATIN
     Indication: PRODUCT USED FOR UNKNOWN INDICATION
     Dosage: 10 DF,UNK,
     Route: 065
  3. SIMVASTATIN AUROBINDO FILMTABLETTEN 5MG [Suspect]
     Active Substance: SIMVASTATIN
     Indication: PRODUCT USED FOR UNKNOWN INDICATION
     Dosage: 5 DF,UNK,
     Route: 048
     Dates: start: 201104, end: 201108
  4. CHOLESTAGEL [Suspect]
     Active Substance: COLESEVELAM HYDROCHLORIDE
     Indication: PRODUCT USED FOR UNKNOWN INDICATION
     Dosage: 4 DF,UNK,
     Route: 065
     Dates: start: 201202
  5. SORTIS [Suspect]
     Active Substance: ATORVASTATIN
     Indication: PRODUCT USED FOR UNKNOWN INDICATION
     Dosage: 10 DF,UNK,
     Route: 065
     Dates: start: 2011, end: 2011
  6. FLUVASTATIN [Suspect]
     Active Substance: FLUVASTATIN SODIUM
     Indication: PRODUCT USED FOR UNKNOWN INDICATION
     Dosage: 20 UNK,UNK,
     Route: 065
     Dates: start: 201206
  7. ATORVASTATIN [Suspect]
     Active Substance: ATORVASTATIN
     Indication: PRODUCT USED FOR UNKNOWN INDICATION
     Dosage: UNK
     Route: 065
     Dates: start: 2011

REACTIONS (5)
  - Angioedema [Recovered/Resolved]
  - Cognitive disorder [Recovered/Resolved]
  - Constipation [Recovered/Resolved]
  - Rash [Recovered/Resolved]
  - Myalgia [Recovered/Resolved]
